FAERS Safety Report 9729024 (Version 1)
Quarter: 2013Q4

REPORT INFORMATION
  Report Type: Spontaneous
  Country: FR (occurrence: FR)
  Receive Date: 20131204
  Receipt Date: 20131204
  Transmission Date: 20140711
  Serious: Yes (Other)
  Sender: FDA-Public Use
  Company Number: FR-ASTRAZENECA-2013SE87265

PATIENT
  Age: 19789 Day
  Sex: Male

DRUGS (2)
  1. CRESTOR [Suspect]
     Indication: HYPERCHOLESTEROLAEMIA
     Route: 048
     Dates: start: 20131110, end: 20131117
  2. OLMETEC [Concomitant]
     Indication: HYPERTENSION
     Route: 048
     Dates: start: 201306

REACTIONS (3)
  - Erectile dysfunction [Unknown]
  - Rash [Recovering/Resolving]
  - Pruritus [Recovering/Resolving]
